FAERS Safety Report 9614029 (Version 11)
Quarter: 2014Q4

REPORT INFORMATION
  Report Type: Spontaneous
  Country: US (occurrence: US)
  Receive Date: 20131011
  Receipt Date: 20141023
  Transmission Date: 20150529
  Serious: Yes (Hospitalization)
  Sender: FDA-Public Use
  Company Number: US-JNJFOC-20121201622

PATIENT
  Sex: Female
  Weight: 72.58 kg

DRUGS (6)
  1. TYLENOL EXTRA STRENGTH [Suspect]
     Active Substance: ACETAMINOPHEN
     Indication: BACK PAIN
     Route: 065
  2. TYLENOL PM [Suspect]
     Active Substance: ACETAMINOPHEN\DIPHENHYDRAMINE
     Indication: SLEEP DISORDER THERAPY
     Route: 065
  3. MULTIVITAMINS [Concomitant]
     Active Substance: VITAMINS
     Indication: NUTRITIONAL SUPPLEMENTATION
     Dosage: THIS MORNING, DAILY
     Route: 048
  4. TYLENOL EXTRA STRENGTH [Suspect]
     Active Substance: ACETAMINOPHEN
     Indication: HEADACHE
     Route: 065
  5. LORTAB [Concomitant]
     Active Substance: ACETAMINOPHEN\HYDROCODONE BITARTRATE
     Indication: PAIN
     Dosage: AS NEEDED 3 DAYS AGO
     Route: 048
  6. KLOR [Concomitant]
     Indication: NUTRITIONAL SUPPLEMENTATION
     Dosage: DAILY, MORNING
     Route: 048

REACTIONS (11)
  - Hepatic failure [Unknown]
  - Urinary tract infection [Unknown]
  - Anaemia [Recovered/Resolved]
  - Ketoacidosis [Unknown]
  - Liver injury [Recovered/Resolved]
  - Hepatitis alcoholic [Unknown]
  - Hyponatraemia [Unknown]
  - Alcohol abuse [Unknown]
  - Thrombocytopenia [Unknown]
  - Metabolic acidosis [Unknown]
  - Deep vein thrombosis [Unknown]
